FAERS Safety Report 4804791-7 (Version None)
Quarter: 2005Q4

REPORT INFORMATION
  Report Type: 
  Country: None (occurrence: None)
  Receive Date: 20051020
  Receipt Date: 20050831
  Transmission Date: 20060501
  Serious: Yes (Hospitalization)
  Sender: FDA-Public Use
  Company Number: BE-ABBOTT-05P-013-0310151-00

PATIENT
  Sex: Female

DRUGS (2)
  1. ZEMPLAR [Suspect]
     Indication: DRUG USE FOR UNKNOWN INDICATION
     Route: 042
  2. VALPROATE SODIUM [Concomitant]
     Indication: EPILEPSY
     Dates: start: 20050620

REACTIONS (2)
  - DIALYSIS [None]
  - HYPERKALAEMIA [None]
